FAERS Safety Report 5584060-0 (Version None)
Quarter: 2008Q1

REPORT INFORMATION
  Report Type: 
  Country: None (occurrence: None)
  Receive Date: 20080104
  Receipt Date: 20080104
  Transmission Date: 20080703
  Serious: Yes (Other)
  Sender: FDA-Public Use
  Company Number: None

PATIENT
  Age: 39 Year
  Sex: Male
  Weight: 65.7716 kg

DRUGS (2)
  1. CHANTIX [Suspect]
     Indication: SMOKING CESSATION THERAPY
     Dosage: CHANTIX 1MG TWICE DAILY ORAL
     Route: 048
     Dates: start: 20071204, end: 20071213
  2. LORTAB [Concomitant]

REACTIONS (2)
  - DEPRESSED MOOD [None]
  - DISCOMFORT [None]
